FAERS Safety Report 23272447 (Version 1)
Quarter: 2023Q4

REPORT INFORMATION
  Report Type: Spontaneous
  Country: US (occurrence: US)
  Receive Date: 20231207
  Receipt Date: 20231207
  Transmission Date: 20240110
  Serious: Yes (Other)
  Sender: FDA-Public Use
  Company Number: US-SUN PHARMACEUTICAL INDUSTRIES LTD-2023R1-421803

PATIENT
  Age: 19 Year
  Sex: Female

DRUGS (2)
  1. DIAMOX SEQUELS [Suspect]
     Active Substance: ACETAZOLAMIDE
     Indication: Hypophosphatasia
     Dosage: UNK
     Route: 065
  2. DIAMOX SEQUELS [Suspect]
     Active Substance: ACETAZOLAMIDE
     Dosage: UNK (DOSE INCREASED)
     Route: 065

REACTIONS (2)
  - Metabolic acidosis [Recovering/Resolving]
  - Acidosis hyperchloraemic [Recovering/Resolving]
